FAERS Safety Report 24001988 (Version 3)
Quarter: 2024Q3

REPORT INFORMATION
  Report Type: Spontaneous
  Country: JP (occurrence: JP)
  Receive Date: 20240622
  Receipt Date: 20240817
  Transmission Date: 20241016
  Serious: No
  Sender: AMGEN
  Company Number: JP-AMGEN-JPNSP2024119343

PATIENT
  Sex: Female

DRUGS (1)
  1. EVENITY [Suspect]
     Active Substance: ROMOSOZUMAB-AQQG
     Indication: Product used for unknown indication
     Dosage: 210 MILLIGRAM
     Route: 058

REACTIONS (1)
  - Urinary incontinence [Recovered/Resolved]
